FAERS Safety Report 21813469 (Version 2)
Quarter: 2023Q2

REPORT INFORMATION
  Report Type: Spontaneous
  Country: US (occurrence: US)
  Receive Date: 20230103
  Receipt Date: 20230419
  Transmission Date: 20230722
  Serious: No
  Sender: FDA-Public Use
  Company Number: US-BIOVITRUM-2022US14177

PATIENT
  Age: 45 Year
  Sex: Female

DRUGS (3)
  1. KINERET [Suspect]
     Active Substance: ANAKINRA
     Indication: Hyperhidrosis
     Dosage: FREQUENCY: ONCE DAILY
     Route: 058
     Dates: start: 202211
  2. KINERET [Suspect]
     Active Substance: ANAKINRA
     Dosage: FREQUENCY: ONCE DAILY
     Route: 058
     Dates: start: 20221104
  3. KINERET [Suspect]
     Active Substance: ANAKINRA
     Dosage: FREQUENCY: ONCE DAILY
     Route: 058
     Dates: start: 20221104

REACTIONS (13)
  - Intentional product misuse [Not Recovered/Not Resolved]
  - Injection site rash [Unknown]
  - Injection site discolouration [Unknown]
  - Product dose omission issue [Unknown]
  - COVID-19 [Recovering/Resolving]
  - Eczema [Unknown]
  - Dry skin [Unknown]
  - Increased appetite [Unknown]
  - Abdominal discomfort [Unknown]
  - Abdominal pain [Unknown]
  - Injection site pain [Unknown]
  - Cyst [Unknown]
  - Abscess [Unknown]

NARRATIVE: CASE EVENT DATE: 20221104
